FAERS Safety Report 6411329-X (Version None)
Quarter: 2009Q4

REPORT INFORMATION
  Report Type: 
  Country: None (occurrence: None)
  Receive Date: 20091020
  Receipt Date: 20091010
  Transmission Date: 20100525
  Serious: Yes (Other)
  Sender: FDA-Public Use
  Company Number: 1-20400084

PATIENT

DRUGS (2)
  1. ROPINIROLE [Suspect]
     Indication: PARKINSON'S DISEASE
     Dosage: ORAL
     Route: 048
  2. UNSPECIFIED DOPAMINE AGONIST [Concomitant]

REACTIONS (5)
  - AGITATION [None]
  - DELUSION [None]
  - HALLUCINATION [None]
  - MOOD ALTERED [None]
  - PSYCHOTIC DISORDER [None]
